FAERS Safety Report 10576469 (Version 3)
Quarter: 2014Q4

REPORT INFORMATION
  Report Type: Spontaneous
  Country: US (occurrence: US)
  Receive Date: 20141111
  Receipt Date: 20141125
  Transmission Date: 20150529
  Serious: Yes (Hospitalization)
  Sender: FDA-Public Use
  Company Number: CHPA2014US014955

PATIENT
  Age: 39 Year
  Sex: Female
  Weight: 69 kg

DRUGS (10)
  1. ATIVAN [Concomitant]
     Active Substance: LORAZEPAM
     Indication: PRODUCT USED FOR UNKNOWN INDICATION
     Dosage: UNK UNK, PRN
     Route: 065
  2. TYLENOL [Concomitant]
     Active Substance: ACETAMINOPHEN
     Indication: PRODUCT USED FOR UNKNOWN INDICATION
     Dosage: UNK, PRN
     Route: 065
  3. PRIVATE LABEL STEP 1 21MG ACCT UNKNOWN [Suspect]
     Active Substance: NICOTINE
     Dosage: 21 MG, ONCE/SINGLE
     Route: 048
     Dates: start: 20140929, end: 20140929
  4. CLOZAPINE. [Concomitant]
     Active Substance: CLOZAPINE
     Indication: SCHIZOAFFECTIVE DISORDER
     Dosage: 250 MG, QD
     Route: 048
     Dates: start: 20140917
  5. LEVOXYL [Concomitant]
     Active Substance: LEVOTHYROXINE SODIUM
     Indication: SCHIZOAFFECTIVE DISORDER
     Dosage: 25 UG, QD
     Route: 048
     Dates: start: 20140917
  6. ATENOLOL. [Concomitant]
     Active Substance: ATENOLOL
     Indication: PRODUCT USED FOR UNKNOWN INDICATION
     Dosage: 25 MG, QD
     Route: 065
  7. LITHIUM [Concomitant]
     Active Substance: LITHIUM CARBONATE
     Indication: SCHIZOAFFECTIVE DISORDER
     Dosage: 600 MG, QD
     Route: 048
     Dates: start: 20140917
  8. CLONAZEPAM. [Concomitant]
     Active Substance: CLONAZEPAM
     Indication: SCHIZOAFFECTIVE DISORDER
     Dosage: 0.5 MG, QD
     Route: 048
     Dates: start: 20140917
  9. CHLORPROMAZINE [Concomitant]
     Active Substance: CHLORPROMAZINE
     Indication: PRODUCT USED FOR UNKNOWN INDICATION
     Dosage: 100 MG, QD PRN
     Route: 065
  10. PRIVATE LABEL STEP 1 21MG ACCT UNKNOWN [Suspect]
     Active Substance: NICOTINE
     Indication: TOBACCO WITHDRAWAL SYMPTOMS
     Dosage: 21 MG, QD
     Route: 061
     Dates: start: 20140917, end: 20141002

REACTIONS (2)
  - Incorrect route of drug administration [Unknown]
  - Seizure [Recovered/Resolved]

NARRATIVE: CASE EVENT DATE: 20140929
